FAERS Safety Report 23700582 (Version 3)
Quarter: 2025Q3

REPORT INFORMATION
  Report Type: Report from Study
  Country: US (occurrence: US)
  Receive Date: 20240403
  Receipt Date: 20250810
  Transmission Date: 20251021
  Serious: No
  Sender: ALEXION PHARMACEUTICALS
  Company Number: US-ALXN-202403USA001933US

PATIENT

DRUGS (1)
  1. STRENSIQ [Suspect]
     Active Substance: ASFOTASE ALFA
     Indication: Hypophosphatasia

REACTIONS (4)
  - Injection site discolouration [Unknown]
  - Injection site pain [Unknown]
  - Injection site warmth [Unknown]
  - Wrong technique in product usage process [Unknown]
